FAERS Safety Report 12799994 (Version 2)
Quarter: 2017Q1

REPORT INFORMATION
  Report Type: Report from Study
  Country: CA (occurrence: CA)
  Receive Date: 20160930
  Receipt Date: 20170203
  Transmission Date: 20170428
  Serious: Yes (Other)
  Sender: FDA-Public Use
  Company Number: CA-TEVA-696558ACC

PATIENT
  Sex: Male

DRUGS (9)
  1. VITAMIN D [Concomitant]
     Active Substance: CHOLECALCIFEROL
     Route: 064
  2. VITAMIN B [Concomitant]
     Active Substance: VITAMIN B
     Route: 064
  3. LITHIUM. [Concomitant]
     Active Substance: LITHIUM
     Route: 064
  4. SYNTHROID [Concomitant]
     Active Substance: LEVOTHYROXINE SODIUM
     Route: 064
  5. DEXEDRINE [Concomitant]
     Active Substance: DEXTROAMPHETAMINE SULFATE
     Route: 064
  6. COPAXONE [Suspect]
     Active Substance: GLATIRAMER ACETATE
     Indication: MULTIPLE SCLEROSIS
     Dosage: 20 MILLIGRAM/MILLILITERS DAILY;
     Route: 064
     Dates: end: 201510
  7. WELLBUTRIN [Concomitant]
     Active Substance: BUPROPION HYDROCHLORIDE
     Route: 064
  8. MULTIVITAMIN [Concomitant]
     Active Substance: VITAMINS
     Route: 064
  9. LAMICTAL [Concomitant]
     Active Substance: LAMOTRIGINE
     Route: 064

REACTIONS (2)
  - Jaundice [Recovered/Resolved]
  - Foetal exposure during pregnancy [Unknown]

NARRATIVE: CASE EVENT DATE: 2016
